FAERS Safety Report 20594291 (Version 1)
Quarter: 2022Q1

REPORT INFORMATION
  Report Type: Spontaneous
  Country: US (occurrence: US)
  Receive Date: 20220315
  Receipt Date: 20220315
  Transmission Date: 20220423
  Serious: Yes (Other)
  Sender: FDA-Public Use
  Company Number: US-ALLERGAN-2205320US

PATIENT
  Age: 29 Year
  Sex: Female

DRUGS (30)
  1. NORCO [Suspect]
     Active Substance: ACETAMINOPHEN\HYDROCODONE BITARTRATE
     Indication: Multiple fractures
     Dosage: UNK
     Route: 048
     Dates: start: 2004, end: 2010
  2. NORCO [Suspect]
     Active Substance: ACETAMINOPHEN\HYDROCODONE BITARTRATE
     Indication: Pain
  3. OXYCODONE [Suspect]
     Active Substance: OXYCODONE
     Indication: Rib fracture
     Dosage: UNK
     Route: 048
     Dates: start: 2004, end: 2010
  4. OXYCODONE [Suspect]
     Active Substance: OXYCODONE
     Indication: Pain
  5. TRAMADOL HCL [Suspect]
     Active Substance: TRAMADOL HYDROCHLORIDE
     Indication: Multiple fractures
     Dosage: UNK
     Dates: start: 2014
  6. TRAMADOL HCL [Suspect]
     Active Substance: TRAMADOL HYDROCHLORIDE
     Indication: Pain
     Dosage: UNK UNK, PRN
     Route: 048
     Dates: start: 19931030
  7. ACETAMINOPHEN\HYDROCODONE [Suspect]
     Active Substance: ACETAMINOPHEN\HYDROCODONE
     Indication: Pain
     Dosage: 1 OR 2 TAB 4 TIMES A DAY, AS NEEDED
     Route: 048
     Dates: start: 2008
  8. ACETAMINOPHEN\HYDROCODONE [Suspect]
     Active Substance: ACETAMINOPHEN\HYDROCODONE
     Dosage: 12 DF, QD
     Route: 048
     Dates: start: 2006
  9. ACETAMINOPHEN\HYDROCODONE [Suspect]
     Active Substance: ACETAMINOPHEN\HYDROCODONE
     Dosage: 2/3 TAB Q4H, AS NEEDED (MAX 12 TAB PER DAY)
     Route: 048
     Dates: start: 2006
  10. ACETAMINOPHEN\HYDROCODONE [Suspect]
     Active Substance: ACETAMINOPHEN\HYDROCODONE
     Dosage: 3 DF, QID
     Route: 048
     Dates: start: 2007
  11. OXYCONTIN [Suspect]
     Active Substance: OXYCODONE HYDROCHLORIDE
     Indication: Multiple fractures
     Dosage: UNK
     Route: 048
     Dates: start: 2004, end: 2010
  12. OXYCONTIN [Suspect]
     Active Substance: OXYCODONE HYDROCHLORIDE
     Indication: Pain
     Dosage: 1-3 TAB 2 TIMES A DAY
     Route: 064
     Dates: start: 2008
  13. VICODIN [Suspect]
     Active Substance: ACETAMINOPHEN\HYDROCODONE BITARTRATE
     Indication: Multiple fractures
     Dosage: UNK
     Route: 048
     Dates: start: 2004, end: 2010
  14. VICODIN [Suspect]
     Active Substance: ACETAMINOPHEN\HYDROCODONE BITARTRATE
     Indication: Pain
  15. OXYCODONE [Suspect]
     Active Substance: OXYCODONE
     Indication: Pain
     Dosage: 2-3 TAB BID
     Route: 048
     Dates: start: 2007
  16. OXYCODONE [Suspect]
     Active Substance: OXYCODONE
     Dosage: 6 DF, QD
     Route: 048
     Dates: start: 2006
  17. OXYCODONE [Suspect]
     Active Substance: OXYCODONE
     Dosage: 1 TO 3 TAB BID
     Route: 048
     Dates: start: 2008
  18. OXYCODONE [Suspect]
     Active Substance: OXYCODONE
     Dosage: 1 OR 2 TAB BID
     Route: 048
  19. OXYCODONE [Suspect]
     Active Substance: OXYCODONE
     Dosage: 6 DF, QD
     Route: 048
     Dates: start: 2007
  20. XANAX [Concomitant]
     Active Substance: ALPRAZOLAM
     Indication: Depression
     Dosage: UNK, PRN
  21. XANAX [Concomitant]
     Active Substance: ALPRAZOLAM
     Indication: Anxiety
     Dosage: UNK
     Dates: start: 2004, end: 2010
  22. SOMA [Concomitant]
     Active Substance: CARISOPRODOL
     Indication: Pain
     Dosage: UNK
     Dates: start: 2004, end: 2020
  23. SOMA [Concomitant]
     Active Substance: CARISOPRODOL
     Indication: Anxiety
  24. METHOTREXATE [Concomitant]
     Active Substance: METHOTREXATE
     Indication: Arthritis
     Dosage: UNK
     Dates: start: 2004, end: 2006
  25. PREDNISONE [Concomitant]
     Active Substance: PREDNISONE
     Indication: Arthritis
     Dosage: UNK
     Dates: start: 2004, end: 2006
  26. FELDENE [Concomitant]
     Active Substance: PIROXICAM
     Indication: Inflammation
     Dosage: UNK
     Dates: start: 2004, end: 2006
  27. FELDENE [Concomitant]
     Active Substance: PIROXICAM
     Indication: Arthritis
  28. ADVAIR HFA [Concomitant]
     Active Substance: FLUTICASONE PROPIONATE\SALMETEROL XINAFOATE
     Indication: Asthma
     Dosage: UNK
     Dates: start: 2004
  29. CELECOXIB [Concomitant]
     Active Substance: CELECOXIB
     Indication: Depression
  30. CELECOXIB [Concomitant]
     Active Substance: CELECOXIB
     Indication: Anxiety

REACTIONS (6)
  - Drug dependence [Unknown]
  - Pregnancy [Unknown]
  - Amniorrhoea [Recovered/Resolved]
  - Vitreous floaters [Recovered/Resolved]
  - Gestational hypertension [Recovered/Resolved]
  - Headache [Recovered/Resolved]

NARRATIVE: CASE EVENT DATE: 20070730
